FAERS Safety Report 19468952 (Version 4)
Quarter: 2022Q1

REPORT INFORMATION
  Report Type: Report from Study
  Country: EG (occurrence: EG)
  Receive Date: 20210628
  Receipt Date: 20220125
  Transmission Date: 20220423
  Serious: Yes (Other)
  Sender: FDA-Public Use
  Company Number: NVSC2021EG136312

PATIENT
  Sex: Female

DRUGS (10)
  1. GILENYA [Suspect]
     Active Substance: FINGOLIMOD HYDROCHLORIDE
     Indication: Multiple sclerosis
     Dosage: 0.5 MG, QD
     Route: 048
     Dates: start: 20210605
  2. GILENYA [Suspect]
     Active Substance: FINGOLIMOD HYDROCHLORIDE
     Dosage: 0.5 MG, QD
     Route: 048
     Dates: start: 202106, end: 20210827
  3. GILENYA [Suspect]
     Active Substance: FINGOLIMOD HYDROCHLORIDE
     Dosage: 0.5 MG, QD
     Route: 048
     Dates: start: 20210831
  4. OMEGA 3 [Concomitant]
     Active Substance: CAPSAICIN
     Indication: Supplementation therapy
     Dosage: 1 DOSAGE FORM, QD (AT NIGHT)
     Route: 065
  5. OMEGA 3 [Concomitant]
     Active Substance: CAPSAICIN
     Indication: Antioxidant therapy
     Dosage: UNK
     Route: 048
     Dates: start: 20211224
  6. CINNARIZINE [Concomitant]
     Active Substance: CINNARIZINE
     Indication: Product used for unknown indication
     Dosage: 25 MG, QD (AT NIGHT)
     Route: 065
  7. FOLIC ACID [Concomitant]
     Active Substance: FOLIC ACID
     Indication: Supplementation therapy
     Dosage: UNK, QD
     Route: 048
     Dates: start: 20211224
  8. FOLIC ACID [Concomitant]
     Active Substance: FOLIC ACID
     Indication: Antioxidant therapy
  9. COBAL [Concomitant]
     Indication: Supplementation therapy
     Dosage: UNK, QD
     Route: 048
     Dates: start: 20211224
  10. COBAL [Concomitant]
     Indication: Antioxidant therapy

REACTIONS (19)
  - Ill-defined disorder [Not Recovered/Not Resolved]
  - Vascular fragility [Not Recovered/Not Resolved]
  - Injury [Not Recovered/Not Resolved]
  - Impaired healing [Recovering/Resolving]
  - Rotator cuff syndrome [Not Recovered/Not Resolved]
  - Migraine [Recovered/Resolved]
  - Central nervous system lesion [Unknown]
  - Mydriasis [Recovering/Resolving]
  - Visual impairment [Recovering/Resolving]
  - Scar [Not Recovered/Not Resolved]
  - Red blood cell count decreased [Unknown]
  - Contusion [Recovering/Resolving]
  - Oedema [Recovering/Resolving]
  - Muscular weakness [Not Recovered/Not Resolved]
  - Limb injury [Recovering/Resolving]
  - White blood cell count decreased [Unknown]
  - Sensory loss [Recovering/Resolving]
  - Varicose vein [Not Recovered/Not Resolved]
  - Product dose omission issue [Unknown]

NARRATIVE: CASE EVENT DATE: 20210101
